FAERS Safety Report 8238415-6 (Version None)
Quarter: 2012Q1

REPORT INFORMATION
  Report Type: 
  Country: None (occurrence: None)
  Receive Date: 20120309
  Receipt Date: 20100414
  Transmission Date: 20120608
  Serious: No
  Sender: FDA-Public Use
  Company Number: PHEH2009US18510

PATIENT
  Age: 59 Year
  Sex: Male

DRUGS (17)
  1. ZETIA [Concomitant]
  2. FUROSEMIDE [Concomitant]
  3. AMLOD/BENAZ (AMLODIPINE, BENAZEPRIL) [Concomitant]
  4. PROTONIX [Concomitant]
  5. SIMVASTATIN [Concomitant]
  6. ADVAIR HFA [Concomitant]
  7. SPIRIVA [Concomitant]
  8. EXTAVIA [Suspect]
     Indication: MULTIPLE SCLEROSIS
     Dosage: 0.25, EVERY OTHER DAY, SUBCUTANEOUS
     Route: 058
     Dates: start: 20091215
  9. FLUOXETINE [Concomitant]
  10. BACLOFEN [Concomitant]
  11. METANX (FOLIC ACID, L-METHYLFOLATE, MECOBALAMIN, PYRIDOXINE) [Concomitant]
  12. OXYGEN THERAPY (NO INGREDIENTS/SUBSTANCES) [Concomitant]
  13. PROVIGIL [Concomitant]
  14. ASPIRIN [Concomitant]
  15. FISH OIL (FISH OIL) [Concomitant]
  16. CALCIUM WITH VITAMIN D (CALCIUM PHOSPHATE, CALCIUM SODIUM LACTATE, ERG [Concomitant]
  17. POTASSIUM CHLORIDE [Concomitant]

REACTIONS (4)
  - INJECTION SITE MASS [None]
  - MUSCULOSKELETAL STIFFNESS [None]
  - PAIN [None]
  - SENSORY DISTURBANCE [None]
